FAERS Safety Report 8482630-3 (Version None)
Quarter: 2012Q3

REPORT INFORMATION
  Report Type: 
  Country: None (occurrence: None)
  Receive Date: 20120702
  Receipt Date: 20120627
  Transmission Date: 20120928
  Serious: Yes (Hospitalization, Disabling, Other)
  Sender: FDA-Public Use
  Company Number: US-MERCK-1203USA03301

PATIENT
  Age: 46 Year
  Sex: Female
  Weight: 50 kg

DRUGS (3)
  1. FOSAMAX [Suspect]
     Indication: OSTEOPOROSIS
     Route: 048
     Dates: end: 20090301
  2. FOSAMAX PLUS D [Suspect]
     Indication: OSTEOPOROSIS
     Route: 048
  3. FOSAMAX [Suspect]
     Indication: OSTEOPENIA
     Route: 048
     Dates: end: 20090301

REACTIONS (49)
  - APPENDICITIS [None]
  - INJURY [None]
  - SINUS DISORDER [None]
  - URINARY TRACT INFECTION [None]
  - RECTAL HAEMORRHAGE [None]
  - PYELONEPHRITIS [None]
  - POLLAKIURIA [None]
  - ACNE [None]
  - FEMUR FRACTURE [None]
  - ANOSMIA [None]
  - HYPERSOMNIA [None]
  - PROCTITIS [None]
  - VERTIGO [None]
  - TOOTH DISORDER [None]
  - NASAL POLYPS [None]
  - CHRONIC SINUSITIS [None]
  - AXILLARY MASS [None]
  - MUSCULOSKELETAL CHEST PAIN [None]
  - HYPERCHOLESTEROLAEMIA [None]
  - BURSITIS [None]
  - SLEEP APNOEA SYNDROME [None]
  - NASAL SEPTUM DEVIATION [None]
  - BREAST PAIN [None]
  - LOW TURNOVER OSTEOPATHY [None]
  - COLITIS ULCERATIVE [None]
  - DIVERTICULUM [None]
  - LABILE HYPERTENSION [None]
  - OSTEOARTHRITIS [None]
  - MYALGIA [None]
  - CALCULUS URETERIC [None]
  - HAEMATOCHEZIA [None]
  - DYSGEUSIA [None]
  - VARICOSE VEIN [None]
  - TACHYCARDIA [None]
  - NASAL DISORDER [None]
  - BREAST CANCER [None]
  - ALLERGIC SINUSITIS [None]
  - SINUSITIS [None]
  - HEPATIC STEATOSIS [None]
  - GAIT DISTURBANCE [None]
  - STRESS FRACTURE [None]
  - BRONCHITIS [None]
  - TYPE IIB HYPERLIPIDAEMIA [None]
  - OSTEOPOROSIS [None]
  - GUILLAIN-BARRE SYNDROME [None]
  - EAR PAIN [None]
  - DIZZINESS [None]
  - ROSACEA [None]
  - GLUCOSE TOLERANCE IMPAIRED [None]
